FAERS Safety Report 6429568-0 (Version None)
Quarter: 2009Q4

REPORT INFORMATION
  Report Type: 
  Country: None (occurrence: None)
  Receive Date: 20091103
  Receipt Date: 20091019
  Transmission Date: 20100525
  Serious: Yes (Life-Threatening, Hospitalization, Other)
  Sender: FDA-Public Use
  Company Number: 2009-201153-NL

PATIENT
  Age: 42 Year
  Sex: Female
  Weight: 84.8226 kg

DRUGS (19)
  1. NUVARING [Suspect]
     Indication: CONTRACEPTION
     Dosage: 1 DF
     Dates: start: 20080221, end: 20080722
  2. NUVARING [Suspect]
  3. RITALIN [Concomitant]
  4. ADDERALL 10 [Concomitant]
  5. WELLBUTRIN [Concomitant]
  6. INDERAL [Concomitant]
  7. XANAX [Concomitant]
  8. CALCIUM CITRATE [Concomitant]
  9. CELEXA [Concomitant]
  10. VITAMIN B-12 [Concomitant]
  11. CLARITIN [Concomitant]
  12. AMBIEN [Concomitant]
  13. PRAVACHOL [Concomitant]
  14. VICODIN [Concomitant]
  15. FLEXERIL [Concomitant]
  16. INDERAL [Concomitant]
  17. ATENOLOL [Concomitant]
  18. TYLENOL (CAPLET) [Concomitant]
  19. SUMATRIPTAN [Concomitant]

REACTIONS (19)
  - ANXIETY [None]
  - ATELECTASIS [None]
  - DEEP VEIN THROMBOSIS [None]
  - DEPRESSION [None]
  - DYSPHEMIA [None]
  - EFFUSION [None]
  - FEAR OF DEATH [None]
  - FEAR OF DISEASE [None]
  - HAEMATOMA [None]
  - HEART RATE INCREASED [None]
  - HYPOAESTHESIA [None]
  - HYPOTENSION [None]
  - INSOMNIA [None]
  - INTRA-ABDOMINAL HAEMORRHAGE [None]
  - POST PROCEDURAL COMPLICATION [None]
  - PULMONARY EMBOLISM [None]
  - SEROMA [None]
  - SKIN DISCOLOURATION [None]
  - URINE OUTPUT DECREASED [None]
